FAERS Safety Report 19803241 (Version 1)
Quarter: 2021Q3

REPORT INFORMATION
  Report Type: Spontaneous
  Country: BG (occurrence: US)
  Receive Date: 20210908
  Receipt Date: 20210908
  Transmission Date: 20211014
  Serious: Yes (Hospitalization, Other)
  Sender: FDA-Public Use
  Company Number: BG-MICRO LABS LIMITED-ML2021-02141

PATIENT
  Age: 87 Year

DRUGS (3)
  1. TELMISARTAN (ANDA 207016) [Suspect]
     Active Substance: TELMISARTAN
     Indication: HYPERTENSION
  2. TELMISARTAN AND AMLODIPINE [Suspect]
     Active Substance: AMLODIPINE BESYLATE\TELMISARTAN
  3. AMLODIPINE [Suspect]
     Active Substance: AMLODIPINE BESYLATE

REACTIONS (1)
  - Metastatic malignant melanoma [Unknown]
